FAERS Safety Report 4588663-1 (Version None)
Quarter: 2005Q1

REPORT INFORMATION
  Report Type: 
  Country: None (occurrence: None)
  Receive Date: 20050214
  Receipt Date: 20050214
  Transmission Date: 20050727
  Serious: Yes (Hospitalization)
  Sender: FDA-Public Use
  Company Number: None

PATIENT
  Age: 64 Year
  Sex: Female
  Weight: 86.9 kg

DRUGS (15)
  1. CISPLATIN [Suspect]
     Indication: SMALL CELL LUNG CANCER STAGE UNSPECIFIED
     Dosage: 116 MG IV EVERY 3 WKS X 2 CYCLES
     Route: 042
     Dates: start: 20050119
  2. CISPLATIN [Suspect]
     Indication: SMALL CELL LUNG CANCER STAGE UNSPECIFIED
     Dosage: 116 MG IV EVERY 3 WKS X 2 CYCLES
     Route: 042
     Dates: start: 20050209
  3. ETOPOSIDE [Suspect]
     Indication: SMALL CELL LUNG CANCER STAGE UNSPECIFIED
     Dosage: 233 MG EVERY 3 WKS X 2 CYCLES
     Dates: start: 20050119
  4. ETOPOSIDE [Suspect]
     Indication: SMALL CELL LUNG CANCER STAGE UNSPECIFIED
     Dosage: 233 MG EVERY 3 WKS X 2 CYCLES
     Dates: start: 20050209
  5. NEXIUM [Concomitant]
  6. LORTAB [Concomitant]
  7. SYNTHROID [Concomitant]
  8. ZOLOFT [Concomitant]
  9. XANAX [Concomitant]
  10. ACTOS [Concomitant]
  11. TRAZODONE HCL [Concomitant]
  12. DURAGESIC-100 [Concomitant]
  13. TEQUIN [Concomitant]
  14. PHENERGAN [Concomitant]
  15. BUSPAR [Concomitant]

REACTIONS (7)
  - BACK PAIN [None]
  - BURNING SENSATION [None]
  - CHEST PAIN [None]
  - HAEMOGLOBIN DECREASED [None]
  - NEUTROPHIL COUNT DECREASED [None]
  - THERAPEUTIC PRODUCT INEFFECTIVE [None]
  - WHITE BLOOD CELL COUNT DECREASED [None]
